FAERS Safety Report 8154281-1 (Version None)
Quarter: 2012Q1

REPORT INFORMATION
  Report Type: 
  Country: None (occurrence: None)
  Receive Date: 20120221
  Receipt Date: 20120207
  Transmission Date: 20120608
  Serious: Yes (Hospitalization)
  Sender: FDA-Public Use
  Company Number: US-ACTELION-A-US2012-60808

PATIENT

DRUGS (2)
  1. TRACLEER [Suspect]
     Indication: PULMONARY ARTERIAL HYPERTENSION
     Dosage: UNK
     Route: 048
     Dates: start: 20110815
  2. COUMADIN [Concomitant]

REACTIONS (7)
  - ABDOMINAL PAIN UPPER [None]
  - CHEST PAIN [None]
  - HAEMATEMESIS [None]
  - NAUSEA [None]
  - LIVER FUNCTION TEST ABNORMAL [None]
  - INTERNATIONAL NORMALISED RATIO INCREASED [None]
  - DYSPEPSIA [None]
